FAERS Safety Report 13356103 (Version 1)
Quarter: 2017Q1

REPORT INFORMATION
  Report Type: Report from Study
  Country: BR (occurrence: BR)
  Receive Date: 20170321
  Receipt Date: 20170321
  Transmission Date: 20170429
  Serious: Yes (Other)
  Sender: FDA-Public Use
  Company Number: PHHY2017BR041080

PATIENT
  Sex: Female
  Weight: 60 kg

DRUGS (2)
  1. OXIMAX [Concomitant]
     Active Substance: MOMETASONE FUROATE
     Indication: PRODUCT USED FOR UNKNOWN INDICATION
     Route: 065
  2. FORASEQ [Suspect]
     Active Substance: BUDESONIDE\FORMOTEROL FUMARATE
     Indication: LUNG DISORDER
     Route: 065

REACTIONS (8)
  - Anxiety [Unknown]
  - Nonspecific reaction [Unknown]
  - Product use issue [Unknown]
  - Lung disorder [Unknown]
  - Malaise [Unknown]
  - Dyspnoea [Unknown]
  - Chronic obstructive pulmonary disease [Unknown]
  - Drug intolerance [Unknown]
